FAERS Safety Report 23938645 (Version 2)
Quarter: 2024Q2

REPORT INFORMATION
  Report Type: Spontaneous
  Country: US (occurrence: US)
  Receive Date: 20240604
  Receipt Date: 20240621
  Transmission Date: 20240716
  Serious: Yes (Death, Hospitalization)
  Sender: FDA-Public Use
  Company Number: US-TEVA-VS-3205049

PATIENT
  Sex: Male

DRUGS (3)
  1. SULFAMETHOXAZOLE\TRIMETHOPRIM [Suspect]
     Active Substance: SULFAMETHOXAZOLE\TRIMETHOPRIM
     Indication: Pneumocystis jirovecii pneumonia
     Dosage: UNSPECIFIED HIGH DOSE
     Route: 065
  2. IMIPENEM AND CILASTATIN [Suspect]
     Active Substance: CILASTATIN SODIUM\IMIPENEM
     Indication: Pneumocystis jirovecii pneumonia
     Dosage: UNSPECIFIED HIGH DOSE
     Route: 065
  3. AMIKACIN [Suspect]
     Active Substance: AMIKACIN
     Indication: Pneumocystis jirovecii pneumonia
     Dosage: UNSPECIFIED HIGH DOSE
     Route: 065

REACTIONS (3)
  - Crystalluria [Unknown]
  - Bladder obstruction [Unknown]
  - Drug ineffective [Fatal]
